FAERS Safety Report 4811349-2 (Version None)
Quarter: 2005Q4

REPORT INFORMATION
  Report Type: 
  Country: None (occurrence: None)
  Receive Date: 20051026
  Receipt Date: 20051026
  Transmission Date: 20060501
  Serious: Yes (Hospitalization)
  Sender: FDA-Public Use
  Company Number: None

PATIENT
  Age: 57 Year
  Sex: Male
  Weight: 88.5 kg

DRUGS (1)
  1. FLUOROURACIL [Suspect]
     Dosage: IV
     Route: 042

REACTIONS (3)
  - ENTERITIS [None]
  - MUCOSAL INFLAMMATION [None]
  - PANCYTOPENIA [None]
